FAERS Safety Report 5249979-9 (Version None)
Quarter: 2007Q1

REPORT INFORMATION
  Report Type: 
  Country: None (occurrence: None)
  Receive Date: 20070228
  Receipt Date: 20060116
  Transmission Date: 20070707
  Serious: No
  Sender: FDA-Public Use
  Company Number: US-GLAXOSMITHKLINE-A0589434A

PATIENT
  Age: 61 Year
  Sex: Male

DRUGS (5)
  1. LAMICTAL [Suspect]
     Indication: BIPOLAR DISORDER
     Dosage: 125MG PER DAY
     Route: 048
  2. NORTRIPTYLINE HCL [Concomitant]
  3. THYROXIN [Concomitant]
  4. KLONOPIN [Concomitant]
  5. ZOLOFT [Concomitant]

REACTIONS (2)
  - GINGIVAL SWELLING [None]
  - HYPERSENSITIVITY [None]
